FAERS Safety Report 9090344 (Version 1)
Quarter: 2013Q1

REPORT INFORMATION
  Report Type: Report from Study
  Country: US (occurrence: US)
  Receive Date: 20130130
  Receipt Date: 20130130
  Transmission Date: 20140127
  Serious: No
  Sender: FDA-Public Use
  Company Number: US-ABBOTT-12P-163-0978515-00

PATIENT
  Age: 65 Year
  Sex: Male

DRUGS (7)
  1. HUMIRA [Suspect]
     Indication: CROHN^S DISEASE
     Dates: start: 201010
  2. 6-MP [Concomitant]
     Indication: CROHN^S DISEASE
     Dosage: 125MG TOTAL 2 1/2 TABLETS A DAY
  3. HYZAAR [Concomitant]
     Indication: BLOOD PRESSURE
     Dosage: 100/25 ONCE A DAY
  4. BLOOD PRESSURE MEDICINE [Concomitant]
     Indication: BLOOD PRESSURE
  5. BLOOD PRESSURE MEDICINE [Concomitant]
     Indication: ATTENTION DEFICIT/HYPERACTIVITY DISORDER
  6. STRATTERA [Concomitant]
     Indication: ATTENTION DEFICIT/HYPERACTIVITY DISORDER
  7. MULTIVITAMINS [Concomitant]
     Indication: VITAMIN SUPPLEMENTATION

REACTIONS (3)
  - Injection site extravasation [Recovered/Resolved]
  - Heart rate increased [Recovered/Resolved]
  - Injection site urticaria [Recovered/Resolved]
